FAERS Safety Report 6770114-X (Version None)
Quarter: 2010Q2

REPORT INFORMATION
  Report Type: 
  Country: None (occurrence: None)
  Receive Date: 20100615
  Receipt Date: 20100528
  Transmission Date: 20101027
  Serious: Yes (Other)
  Sender: FDA-Public Use
  Company Number: FR-PFIZER INC-2010074215

PATIENT
  Age: 58 Year
  Sex: Male

DRUGS (11)
  1. MORPHINE SULFATE [Suspect]
  2. SERTRALINE HCL [Suspect]
  3. TRAMADOL [Suspect]
  4. ESCITALOPRAM [Suspect]
  5. CLONAZEPAM [Suspect]
  6. AMITRIPTYLINE [Suspect]
  7. OXAZEPAM [Suspect]
  8. MEPROBAMATE [Suspect]
  9. NORTRIPTYLINE [Suspect]
  10. PHENOBARBITAL [Suspect]
  11. TIAPRIDE [Suspect]

REACTIONS (4)
  - DRUG ABUSE [None]
  - HYPOTENSION [None]
  - SPEECH DISORDER [None]
  - SYNCOPE [None]
